FAERS Safety Report 7078270-3 (Version None)
Quarter: 2010Q4

REPORT INFORMATION
  Report Type: 
  Country: None (occurrence: None)
  Receive Date: 20101101
  Receipt Date: 20101101
  Transmission Date: 20110411
  Serious: Yes (Other)
  Sender: FDA-Public Use
  Company Number: None

PATIENT
  Sex: Female
  Weight: 53.8 kg

DRUGS (8)
  1. DEFERIPRONE 500 MG TABS APOPHARMA [Suspect]
     Indication: IRON OVERLOAD
     Dosage: 4000 MG DAILY ORAL
     Route: 048
     Dates: start: 20100823, end: 20101026
  2. DEFERIPRONE 500 MG TABS APOPHARMA [Suspect]
     Indication: TRANSFUSION
     Dosage: 4000 MG DAILY ORAL
     Route: 048
     Dates: start: 20100823, end: 20101026
  3. SYNTHROID [Concomitant]
  4. DEFEROXAMINE MESYLATE [Concomitant]
  5. DEFERASIROX [Concomitant]
  6. ZANTAC [Concomitant]
  7. BENADRYL [Concomitant]
  8. TYLENOL (CAPLET) [Concomitant]

REACTIONS (1)
  - NEUTROPENIA [None]
